FAERS Safety Report 20227093 (Version 2)
Quarter: 2024Q2

REPORT INFORMATION
  Report Type: Spontaneous
  Country: US (occurrence: None)
  Receive Date: 20211224
  Receipt Date: 20240404
  Transmission Date: 20240716
  Serious: Yes (Other)
  Sender: FDA-Public Use
  Company Number: US-ROCHE-2962889

PATIENT
  Sex: Male

DRUGS (2)
  1. HEMLIBRA [Suspect]
     Active Substance: EMICIZUMAB-KXWH
     Indication: Factor VIII deficiency
     Route: 058
     Dates: start: 20190910
  2. HEMLIBRA [Suspect]
     Active Substance: EMICIZUMAB-KXWH
     Route: 058
     Dates: start: 201207

REACTIONS (7)
  - Cellulitis [Unknown]
  - Wound [Unknown]
  - Infection [Unknown]
  - Skin haemorrhage [Recovered/Resolved]
  - Injury [Recovered/Resolved]
  - Haemorrhage [Unknown]
  - Soft tissue swelling [Unknown]

NARRATIVE: CASE EVENT DATE: 20211110
